FAERS Safety Report 17928695 (Version 1)
Quarter: 2020Q2

REPORT INFORMATION
  Report Type: Spontaneous
  Country: US (occurrence: US)
  Receive Date: 20200622
  Receipt Date: 20200622
  Transmission Date: 20200714
  Serious: Yes (Other)
  Sender: FDA-Public Use
  Company Number: None

PATIENT
  Age: 87 Year
  Sex: Female
  Weight: 48.15 kg

DRUGS (1)
  1. PROLIA [Suspect]
     Active Substance: DENOSUMAB
     Indication: OSTEOPOROSIS
     Dosage: ?          OTHER FREQUENCY:FIRST DOSE;?
     Route: 058
     Dates: start: 20200324, end: 20200324

REACTIONS (5)
  - Diarrhoea [None]
  - Pain [None]
  - Arthralgia [None]
  - Pain in extremity [None]
  - Rash [None]

NARRATIVE: CASE EVENT DATE: 20200512
